FAERS Safety Report 6031488-0 (Version None)
Quarter: 2009Q1

REPORT INFORMATION
  Report Type: 
  Country: None (occurrence: None)
  Receive Date: 20090108
  Receipt Date: 20090105
  Transmission Date: 20090719
  Serious: Yes (Other)
  Sender: FDA-Public Use
  Company Number: GB-PFIZER INC-2009151718

PATIENT

DRUGS (3)
  1. LIPITOR [Suspect]
     Route: 048
     Dates: start: 19990201
  2. AMLOVAS [Suspect]
     Dates: start: 20080901
  3. NICORANDIL [Suspect]

REACTIONS (5)
  - ALOPECIA [None]
  - CORONARY ARTERY BYPASS [None]
  - LEUKAEMIA [None]
  - SWOLLEN TONGUE [None]
  - TONGUE ULCERATION [None]
